FAERS Safety Report 11122123 (Version 3)
Quarter: 2015Q3

REPORT INFORMATION
  Report Type: Spontaneous
  Country: JP (occurrence: JP)
  Receive Date: 20150519
  Receipt Date: 20150729
  Transmission Date: 20151125
  Serious: Yes (Disabling, Other)
  Sender: FDA-Public Use
  Company Number: JP-PFIZER INC-2015167001

PATIENT
  Age: 80 Year
  Sex: Female
  Weight: 52 kg

DRUGS (5)
  1. MUCOSTA [Concomitant]
     Active Substance: REBAMIPIDE
     Indication: GASTRITIS
     Dosage: 1 DF, 3X/DAY
     Route: 048
     Dates: start: 20110927
  2. ARICEPT [Concomitant]
     Active Substance: DONEPEZIL HYDROCHLORIDE
     Indication: DEMENTIA
     Dosage: 5 MG, 1X/DAY
     Route: 048
     Dates: end: 20110926
  3. CELECOX [Suspect]
     Active Substance: CELECOXIB
     Indication: BACK PAIN
     Dosage: 100 MG, 2X/DAY
     Route: 048
     Dates: start: 20120402, end: 20120406
  4. ACINON [Concomitant]
     Active Substance: NIZATIDINE
     Indication: DUODENAL ULCER
     Dosage: 1 DF, 1X/DAY
     Route: 048
     Dates: start: 20101025
  5. ARICEPT [Concomitant]
     Active Substance: DONEPEZIL HYDROCHLORIDE
     Dosage: 10 MG, 1X/DAY
     Route: 048
     Dates: start: 20110927

REACTIONS (5)
  - Hallucination [Recovered/Resolved]
  - Restlessness [Recovered/Resolved]
  - Mental disorder [Recovered/Resolved]
  - Abnormal behaviour [Recovered/Resolved]
  - Insomnia [Recovered/Resolved]

NARRATIVE: CASE EVENT DATE: 20120405
